FAERS Safety Report 8496839-6 (Version None)
Quarter: 2012Q3

REPORT INFORMATION
  Report Type: 
  Country: None (occurrence: None)
  Receive Date: 20120709
  Receipt Date: 20120703
  Transmission Date: 20120928
  Serious: Yes (Hospitalization)
  Sender: FDA-Public Use
  Company Number: CN-ALLERGAN-1207632US

PATIENT
  Sex: Female

DRUGS (1)
  1. BOTULINUM TOXIN TYPE A [Suspect]
     Indication: MUSCLE HYPERTROPHY
     Dosage: 60 UNITS, SINGLE
     Route: 030
     Dates: start: 20120525, end: 20120525

REACTIONS (2)
  - DIZZINESS [None]
  - HYPERTENSION [None]
